FAERS Safety Report 9858579 (Version 1)
Quarter: 2014Q1

REPORT INFORMATION
  Report Type: Spontaneous
  Country: US (occurrence: US)
  Receive Date: 20140131
  Receipt Date: 20140131
  Transmission Date: 20141002
  Serious: Yes (Death)
  Sender: FDA-Public Use
  Company Number: US-INCYTE CORPORATION-2014IN000207

PATIENT
  Age: 66 Year
  Sex: Male

DRUGS (2)
  1. JAKAFI [Suspect]
     Dosage: 10 MG, BID
     Route: 048
     Dates: start: 20130607
  2. AMLODIPINE [Concomitant]

REACTIONS (1)
  - Death [Fatal]
